FAERS Safety Report 6386171-9 (Version None)
Quarter: 2009Q4

REPORT INFORMATION
  Report Type: 
  Country: None (occurrence: None)
  Receive Date: 20091002
  Receipt Date: 20090106
  Transmission Date: 20100525
  Serious: No
  Sender: FDA-Public Use
  Company Number: US-ASTRAZENECA-2009UW00381

PATIENT
  Age: 62 Year
  Sex: Female
  Weight: 90.7 kg

DRUGS (8)
  1. ARIMIDEX [Suspect]
     Indication: GAMMA RADIATION THERAPY TO BREAST
     Dosage: UNKNOWN
     Route: 048
     Dates: start: 20090101
  2. AMLODIPINE [Concomitant]
  3. SIMVASTATIN [Concomitant]
  4. COSAMINE DS [Concomitant]
  5. CALCIUM W/VITAMIN D [Concomitant]
  6. BUMETANIDE [Concomitant]
  7. OXYCODONE [Concomitant]
     Dosage: PRN
  8. XANAX [Concomitant]
     Dosage: PRN

REACTIONS (2)
  - BLOOD PRESSURE INCREASED [None]
  - ILL-DEFINED DISORDER [None]
